FAERS Safety Report 8018135-3 (Version None)
Quarter: 2011Q4

REPORT INFORMATION
  Report Type: 
  Country: None (occurrence: None)
  Receive Date: 20111228
  Receipt Date: 20111219
  Transmission Date: 20120403
  Serious: Yes (Hospitalization)
  Sender: FDA-Public Use
  Company Number: 1000026159

PATIENT
  Age: 89 Year
  Sex: Female

DRUGS (19)
  1. MOPRAL (OMEPRAZOLE) (TABLETS) (OMEPRAZOLE) [Concomitant]
  2. PARACETAMOL (PARACETAMOL) (1 GRAM) (PARACETAMOL) [Concomitant]
  3. OXYGEN (OXYGEN) (GAS FOR INHALATION) (OXYGEN) [Concomitant]
  4. SPECIAFOLDINE (FOLIC ACID) (TABLETS) (FOLIC ACID) [Concomitant]
  5. ESCITALOPRAM OXALATE [Suspect]
     Dosage: 20 MG (20 MG, 1 IN 1 D), ORAL
     Route: 048
     Dates: end: 20111031
  6. AMLOR (AMLODIPINE BESILATE) (5 MILLIGRAM, CAPSULES) (AMLODIPINE BESILA [Concomitant]
  7. STILNOX (ZOLPIDEM TARTRATE) (10 MILLIGRAM, TABLETS) (ZOLPIDEM TARTRATE [Concomitant]
  8. TAVANIC (LEVOFLOXACIN) (500 MILLIGRAM) (LEVOFLOXACIN) [Concomitant]
  9. ANAFRANIL (CLOMIPRAMINE HYDROCHLORIDE) (25 MILLIGRAM, TABLETS) (CLOMIP [Concomitant]
  10. ZESTRIL (LISINOPRIL (20 MILLIGRAM, TABLETS) (LISINOPRIL) [Concomitant]
  11. PREVISCAN (FLUINDIONE) (20 MILLIGRAM, TABLETS) [Suspect]
     Indication: THROMBOSIS PROPHYLAXIS
     Dosage: 30 MG (30 MG, 1 IN 1 D), ORAL
     Route: 048
  12. TRACLEER (BOSENTAN) (125 MILLIGRAM, TABLETS) (BOSENTAN) [Concomitant]
  13. PROFENID (KETOPROFEN) (100 MILLIGRAM, INJECTION) [Suspect]
     Indication: SCIATICA
     Dosage: 100 MG (100 MG, 1 IN 1 D), INTRAVENOUS (NOT OTHERWISE SPECIFIED)
     Route: 042
     Dates: start: 20111018, end: 20111023
  14. DUROGESIC (FENTANYL) (POULTICE OR PATCH) (FENTANYL) [Concomitant]
  15. EUPANTOL (PANTOPRAZOLE SODIUM SESQUIHYDRATE) (40 MILLIGRAM, INJECTION) [Concomitant]
  16. LASILIX (FUROSEMIDE) (40 MILLIGRAM, TABLETS) (FUROSEMIDE) [Concomitant]
  17. ADENURIC (FEBUXOSTAT) (80 MILLIGRAM, TABLETS) (FEBUXOSTAT) [Concomitant]
  18. AERIUS (EBASTINE) (5 MILLIGRAM, TABLETS) (EBASTINE) [Concomitant]
  19. ROCEPHINE (CEFTRIAXONE SODIUM) (CEFTRIAXONE SODIUM) [Concomitant]

REACTIONS (6)
  - INTERNATIONAL NORMALISED RATIO INCREASED [None]
  - SMALL INTESTINAL HAEMORRHAGE [None]
  - URINARY TRACT INFECTION [None]
  - ANAEMIA [None]
  - LUNG INFECTION [None]
  - MELAENA [None]
